FAERS Safety Report 5852097-X (Version None)
Quarter: 2008Q3

REPORT INFORMATION
  Report Type: 
  Country: None (occurrence: None)
  Receive Date: 20080819
  Receipt Date: 20080819
  Transmission Date: 20090109
  Serious: Yes (Hospitalization)
  Sender: FDA-Public Use
  Company Number: None

PATIENT
  Age: 64 Year
  Sex: Male
  Weight: 70.3075 kg

DRUGS (1)
  1. CISPLATIN [Suspect]
     Dates: start: 20080618, end: 20080729

REACTIONS (2)
  - ASTHENIA [None]
  - BLOOD GLUCOSE INCREASED [None]
